FAERS Safety Report 20855774 (Version 1)
Quarter: 2022Q2

REPORT INFORMATION
  Report Type: Report from Study
  Country: IE (occurrence: IE)
  Receive Date: 20220520
  Receipt Date: 20220520
  Transmission Date: 20220720
  Serious: Yes (Other)
  Sender: FDA-Public Use
  Company Number: IE-MYLANLABS-2022M1036538

PATIENT
  Age: 55 Year
  Sex: Male

DRUGS (1)
  1. GLATIRAMER ACETATE [Suspect]
     Active Substance: GLATIRAMER ACETATE
     Indication: Multiple sclerosis
     Dosage: 40 MILLIGRAM, 3XW
     Route: 058
     Dates: start: 20210714

REACTIONS (2)
  - Burning sensation [Not Recovered/Not Resolved]
  - Fatigue [Not Recovered/Not Resolved]
